FAERS Safety Report 7402607-6 (Version None)
Quarter: 2011Q1

REPORT INFORMATION
  Report Type: 
  Country: None (occurrence: None)
  Receive Date: 20110331
  Receipt Date: 20110322
  Transmission Date: 20110831
  Serious: Yes (Death, Life-Threatening, Hospitalization)
  Sender: FDA-Public Use
  Company Number: 2010AC000435

PATIENT
  Age: 83 Year
  Sex: Female
  Weight: 77.1115 kg

DRUGS (21)
  1. CALCIUM [Concomitant]
  2. MORPHINE [Concomitant]
  3. ATIVAN [Concomitant]
  4. DIGOXIN [Suspect]
     Indication: ARRHYTHMIA
     Dosage: 0.125 MG;QD;PO
     Route: 048
     Dates: start: 20070105, end: 20070201
  5. LIPITOR [Concomitant]
  6. VANCOMYCIN [Concomitant]
  7. TRIAMTERENE AND HYDROCHLOROTHIAZIDE [Concomitant]
  8. MULTI-VITAMINS [Concomitant]
  9. LEVAQUIN [Concomitant]
  10. HEPARIN [Concomitant]
  11. WARFARIN SODIUM [Concomitant]
  12. ATENOLOL [Concomitant]
  13. ASPIRIN [Concomitant]
  14. DEBROX [Concomitant]
  15. QUINAPRIL [Concomitant]
  16. DIGOXIN [Suspect]
     Dosage: ;PO
     Route: 048
     Dates: start: 20080305
  17. DIGOXIN [Suspect]
     Dosage: 0.125 MG;QD;PO
     Route: 048
     Dates: start: 20071102, end: 20080426
  18. ACTONEL [Concomitant]
  19. SYNTHROID [Concomitant]
  20. POTASSIUM [Concomitant]
  21. AZITHROMYCIN [Concomitant]

REACTIONS (55)
  - OROPHARYNGEAL PAIN [None]
  - HYPOACUSIS [None]
  - ATRIAL FIBRILLATION [None]
  - ENCEPHALOMALACIA [None]
  - CONTUSION [None]
  - BACTERAEMIA [None]
  - BLOOD CREATINE INCREASED [None]
  - HEART RATE IRREGULAR [None]
  - BALANCE DISORDER [None]
  - UNRESPONSIVE TO STIMULI [None]
  - CEREBRAL INFARCTION [None]
  - CEREBRAL HAEMORRHAGE [None]
  - HAEMATURIA [None]
  - GENERAL PHYSICAL HEALTH DETERIORATION [None]
  - DIASTOLIC DYSFUNCTION [None]
  - DEMENTIA ALZHEIMER'S TYPE [None]
  - MUSCULOSKELETAL PAIN [None]
  - JOINT SPRAIN [None]
  - CARDIOACTIVE DRUG LEVEL DECREASED [None]
  - CEREBROVASCULAR ACCIDENT [None]
  - ASPARTATE AMINOTRANSFERASE INCREASED [None]
  - LEFT ATRIAL DILATATION [None]
  - OVERDOSE [None]
  - INJURY [None]
  - ASTHENIA [None]
  - NIGHT SWEATS [None]
  - JOINT RANGE OF MOTION DECREASED [None]
  - GAIT DISTURBANCE [None]
  - PALPITATIONS [None]
  - THROMBOCYTOPENIA [None]
  - CARDIO-RESPIRATORY ARREST [None]
  - INSOMNIA [None]
  - PARAESTHESIA [None]
  - FLANK PAIN [None]
  - FAECAL INCONTINENCE [None]
  - HYPOXIA [None]
  - RENAL FAILURE CHRONIC [None]
  - CHEST PAIN [None]
  - POLLAKIURIA [None]
  - URINARY INCONTINENCE [None]
  - FALL [None]
  - SEPSIS [None]
  - ACUTE MYOCARDIAL INFARCTION [None]
  - PRODUCT MEASURED POTENCY ISSUE [None]
  - BLOOD POTASSIUM DECREASED [None]
  - BLOOD SODIUM DECREASED [None]
  - CERUMEN IMPACTION [None]
  - MEMORY IMPAIRMENT [None]
  - AORTIC VALVE SCLEROSIS [None]
  - TINNITUS [None]
  - PRODUCT QUALITY ISSUE [None]
  - PYREXIA [None]
  - STAPHYLOCOCCUS TEST POSITIVE [None]
  - LEUKOCYTOSIS [None]
  - HYPOCALCAEMIA [None]
